FAERS Safety Report 6519333-8 (Version None)
Quarter: 2009Q4

REPORT INFORMATION
  Report Type: 
  Country: None (occurrence: None)
  Receive Date: 20091224
  Receipt Date: 20091224
  Transmission Date: 20100525
  Serious: Yes (Life-Threatening)
  Sender: FDA-Public Use
  Company Number: None

PATIENT
  Age: 73 Year
  Sex: Female
  Weight: 60 kg

DRUGS (17)
  1. LINEZOLID 600 MG Q12H IV [Suspect]
     Indication: INFECTION
     Dosage: LINEZOLID 600 MG Q12H IV
     Route: 042
     Dates: start: 20091212, end: 20091215
  2. CIPROFLOXACIN [Concomitant]
  3. POTASSIUM CHLORIDE [Concomitant]
  4. IVPB [Concomitant]
  5. MAGNESIUM SULFATE [Concomitant]
  6. ALBUMIN (HUMAN) [Concomitant]
  7. HYDRLAZINE [Concomitant]
  8. NS IV [Concomitant]
  9. DEXTROSE [Concomitant]
  10. PANCURONIUM BROMIDE [Concomitant]
  11. SODIUM CHLORIDE [Concomitant]
  12. DOPAMINE DRIP [Concomitant]
  13. MORPHINE PCA PRN [Concomitant]
  14. BENADRYL [Concomitant]
  15. ZOFRAN [Concomitant]
  16. BUMEX [Concomitant]
  17. LOPRESSOR [Concomitant]

REACTIONS (2)
  - ACUTE RESPIRATORY DISTRESS SYNDROME [None]
  - THROMBOCYTOPENIA [None]
